FAERS Safety Report 19252218 (Version 1)
Quarter: 2021Q2

REPORT INFORMATION
  Report Type: Spontaneous
  Country: US (occurrence: US)
  Receive Date: 20210513
  Receipt Date: 20210513
  Transmission Date: 20210717
  Serious: No
  Sender: FDA-Public Use
  Company Number: US-KARYOPHARM-2021KPT000436

PATIENT

DRUGS (1)
  1. SELINEXOR. [Suspect]
     Active Substance: SELINEXOR
     Indication: NEOPLASM MALIGNANT

REACTIONS (1)
  - Meibomian gland dysfunction [Unknown]
